FAERS Safety Report 24790793 (Version 1)
Quarter: 2024Q4

REPORT INFORMATION
  Report Type: Other
  Country: CN (occurrence: CN)
  Receive Date: 20241230
  Receipt Date: 20241230
  Transmission Date: 20250115
  Serious: Yes (Other)
  Sender: Phathom Pharmaceuticals
  Company Number: CN-PHATHOM PHARMACEUTICALS INC.-2024PHT01559

PATIENT
  Age: 66 Year
  Sex: Female
  Weight: 62 kg

DRUGS (4)
  1. VONOPRAZAN [Suspect]
     Active Substance: VONOPRAZAN
     Indication: Helicobacter infection
     Dosage: 20 MILLIGRAM, BID
     Route: 048
     Dates: start: 20241202, end: 20241209
  2. CLARITHROMYCIN [Suspect]
     Active Substance: CLARITHROMYCIN
     Indication: Helicobacter infection
     Dosage: 0.5 GRAM, BID
     Route: 048
     Dates: start: 20241202, end: 20241209
  3. TINIDAZOLE [Suspect]
     Active Substance: TINIDAZOLE
     Indication: Helicobacter infection
     Dosage: 0.5 GRAM, BID
     Route: 048
     Dates: start: 20241202, end: 20241209
  4. BISMUTH SUBCITRATE [Suspect]
     Active Substance: BISMUTH SUBCITRATE
     Indication: Helicobacter infection
     Dosage: UNK, TID
     Route: 048
     Dates: start: 20241202, end: 20241209

REACTIONS (2)
  - Rash [Recovering/Resolving]
  - Pruritus [Recovering/Resolving]

NARRATIVE: CASE EVENT DATE: 20241209
